FAERS Safety Report 5840150-6 (Version None)
Quarter: 2008Q3

REPORT INFORMATION
  Report Type: 
  Country: None (occurrence: None)
  Receive Date: 20080807
  Receipt Date: 20080807
  Transmission Date: 20090109
  Serious: No
  Sender: FDA-Public Use
  Company Number: None

PATIENT
  Age: 78 Year
  Sex: Female
  Weight: 49.8957 kg

DRUGS (2)
  1. HYDROCHLOROTHIAZIDE [Suspect]
     Indication: HYPERTENSION
     Dosage: 1 PER DAY
     Dates: start: 20070101
  2. INDAPAMIDE [Suspect]
     Indication: HYPERTENSION
     Dosage: 1 PER DAY
     Dates: start: 20070101

REACTIONS (6)
  - ASTHENIA [None]
  - CONSTIPATION [None]
  - FATIGUE [None]
  - HEART RATE IRREGULAR [None]
  - SEXUAL DYSFUNCTION [None]
  - VISUAL IMPAIRMENT [None]
